FAERS Safety Report 5873802-2 (Version None)
Quarter: 2008Q3

REPORT INFORMATION
  Report Type: 
  Country: None (occurrence: None)
  Receive Date: 20080903
  Receipt Date: 20080903
  Transmission Date: 20090109
  Serious: Yes (Life-Threatening, Hospitalization)
  Sender: FDA-Public Use
  Company Number: None

PATIENT
  Age: 41 Year
  Sex: Male
  Weight: 81.6475 kg

DRUGS (1)
  1. TRAMADOL HCL [Suspect]
     Indication: BACK PAIN
     Dosage: PILL 3 PER DAY BUCCAL
     Route: 002
     Dates: start: 20080830, end: 20080908

REACTIONS (12)
  - ASTHENIA [None]
  - DIZZINESS [None]
  - DYSPNOEA [None]
  - FEELING ABNORMAL [None]
  - FLUSHING [None]
  - HYPOVENTILATION [None]
  - LIP SWELLING [None]
  - PHARYNGEAL OEDEMA [None]
  - PULSE PRESSURE DECREASED [None]
  - SOMNOLENCE [None]
  - SWELLING FACE [None]
  - SWOLLEN TONGUE [None]
